FAERS Safety Report 8144432-7 (Version None)
Quarter: 2012Q1

REPORT INFORMATION
  Report Type: 
  Country: None (occurrence: None)
  Receive Date: 20120217
  Receipt Date: 20120208
  Transmission Date: 20120608
  Serious: Yes (Other)
  Sender: FDA-Public Use
  Company Number: SE-BAYER-2012-013429

PATIENT

DRUGS (2)
  1. NIMOTOP [Suspect]
     Indication: VASOSPASM
  2. NIMOTOP [Suspect]
     Indication: SUBARACHNOID HAEMORRHAGE

REACTIONS (2)
  - OXYGEN SATURATION DECREASED [None]
  - DRUG EFFECT DELAYED [None]
